FAERS Safety Report 13854403 (Version 4)
Quarter: 2018Q1

REPORT INFORMATION
  Report Type: Spontaneous
  Country: US (occurrence: US)
  Receive Date: 20170809
  Receipt Date: 20180118
  Transmission Date: 20180508
  Serious: Yes (Other)
  Sender: FDA-Public Use
  Company Number: US-JAZZ-2017-US-009609

PATIENT
  Sex: Male

DRUGS (42)
  1. XYREM [Suspect]
     Active Substance: SODIUM OXYBATE
     Dosage: DOSE ADJUSTMENT
     Route: 048
     Dates: start: 201310, end: 201311
  2. VITAMIN E                          /00110501/ [Concomitant]
     Active Substance: TOCOPHEROL
  3. OMEPRAZOLE. [Concomitant]
     Active Substance: OMEPRAZOLE
  4. CALCITRIOL. [Concomitant]
     Active Substance: CALCITRIOL
  5. LASIX [Concomitant]
     Active Substance: FUROSEMIDE
  6. THEOPHYLLINE [Concomitant]
     Active Substance: THEOPHYLLINE ANHYDROUS
  7. GLUCOSAMINE SULFATE [Concomitant]
     Active Substance: GLUCOSAMINE SULFATE
  8. XYREM [Suspect]
     Active Substance: SODIUM OXYBATE
     Indication: NARCOLEPSY
     Dosage: 2.25 G, BID
     Route: 048
     Dates: start: 201310, end: 201310
  9. POTASSIUM GLUCONATE [Concomitant]
     Active Substance: POTASSIUM GLUCONATE
  10. SYMBICORT [Concomitant]
     Active Substance: BUDESONIDE\FORMOTEROL FUMARATE DIHYDRATE
  11. NUVIGIL [Concomitant]
     Active Substance: ARMODAFINIL
  12. CLONIDINE HCL [Concomitant]
     Active Substance: CLONIDINE HYDROCHLORIDE
  13. XYREM [Suspect]
     Active Substance: SODIUM OXYBATE
     Dosage: 4.5G, BID
     Route: 048
     Dates: start: 201311
  14. GUAIFENESIN. [Concomitant]
     Active Substance: GUAIFENESIN
  15. LOVASTATIN. [Concomitant]
     Active Substance: LOVASTATIN
  16. PROPRANOLOL [Concomitant]
     Active Substance: PROPRANOLOL HYDROCHLORIDE
  17. TRIAMTERENE AND HYDROCHLOROTHIAZIDE [Concomitant]
     Active Substance: HYDROCHLOROTHIAZIDE\TRIAMTERENE
  18. ASPIRIN (E.C.) [Concomitant]
     Active Substance: ASPIRIN
  19. TRAMADOL HCL [Concomitant]
     Active Substance: TRAMADOL HYDROCHLORIDE
  20. LEFLUNOMIDE. [Concomitant]
     Active Substance: LEFLUNOMIDE
  21. TAMSULOSIN HCL [Concomitant]
     Active Substance: TAMSULOSIN HYDROCHLORIDE
  22. TIZANIDINE HCL [Concomitant]
     Active Substance: TIZANIDINE HYDROCHLORIDE
  23. AMLODIPINE BESYLATE. [Concomitant]
     Active Substance: AMLODIPINE BESYLATE
  24. CENTRUM SILVER                     /02363801/ [Concomitant]
     Active Substance: MINERALS\VITAMINS
  25. MELOXICAM. [Concomitant]
     Active Substance: MELOXICAM
  26. FAMOTIDINE. [Concomitant]
     Active Substance: FAMOTIDINE
  27. LYRICA [Concomitant]
     Active Substance: PREGABALIN
  28. PREDNISONE. [Concomitant]
     Active Substance: PREDNISONE
  29. NEXIUM [Concomitant]
     Active Substance: ESOMEPRAZOLE MAGNESIUM
  30. CLARITIN [Concomitant]
     Active Substance: LORATADINE
  31. CALCIUM CARBONATE. [Concomitant]
     Active Substance: CALCIUM CARBONATE
  32. SAW PALMETTO                       /00833501/ [Concomitant]
     Active Substance: HERBALS\SAW PALMETTO
  33. METHYLPREDNISOLONE. [Concomitant]
     Active Substance: METHYLPREDNISOLONE
  34. LOSARTAN POTASSIUM. [Concomitant]
     Active Substance: LOSARTAN POTASSIUM
  35. SIMETHICONE (DIMETHICONE) [Concomitant]
     Active Substance: DIMETHICONE
  36. YEAST [Concomitant]
     Active Substance: YEAST
  37. DOXYCYCLINE HYCLATE. [Concomitant]
     Active Substance: DOXYCYCLINE HYCLATE
  38. QVAR [Concomitant]
     Active Substance: BECLOMETHASONE DIPROPIONATE
  39. VITAMIN C [Concomitant]
     Active Substance: ASCORBIC ACID
  40. PROVIGIL [Concomitant]
     Active Substance: MODAFINIL
  41. FISH OIL CONCENTRATE [Concomitant]
     Active Substance: FISH OIL
  42. ASPIRIN                            /00002701/ [Concomitant]
     Active Substance: ASPIRIN

REACTIONS (9)
  - Neuropathy peripheral [Not Recovered/Not Resolved]
  - Mental disorder [Not Recovered/Not Resolved]
  - Hypersensitivity [Unknown]
  - Sciatica [Unknown]
  - Dyspnoea [Unknown]
  - Cardiac murmur [Recovering/Resolving]
  - Spinal operation [Unknown]
  - Pre-existing condition improved [Unknown]
  - Condition aggravated [Recovering/Resolving]

NARRATIVE: CASE EVENT DATE: 2014
